FAERS Safety Report 12591535 (Version 1)
Quarter: 2016Q3

REPORT INFORMATION
  Report Type: Spontaneous
  Country: JP (occurrence: JP)
  Receive Date: 20160726
  Receipt Date: 20160726
  Transmission Date: 20161109
  Serious: Yes (Other)
  Sender: FDA-Public Use
  Company Number: JP-ROCHE-1787832

PATIENT
  Age: 62 Year
  Sex: Female

DRUGS (6)
  1. HERCEPTIN [Suspect]
     Active Substance: TRASTUZUMAB
     Indication: BREAST CANCER
     Dosage: DOSAGE IS UNCERTAIN.
     Route: 041
     Dates: start: 201512
  2. HALAVEN [Concomitant]
     Active Substance: ERIBULIN MESYLATE
     Indication: BREAST CANCER
     Dosage: DOSAGE IS UNCERTAIN.
     Route: 041
     Dates: start: 201603, end: 2016
  3. HERCEPTIN [Suspect]
     Active Substance: TRASTUZUMAB
     Dosage: DOSAGE IS UNCERTAIN.
     Route: 041
     Dates: start: 201603, end: 201605
  4. DOCETAXEL. [Suspect]
     Active Substance: DOCETAXEL
     Indication: BREAST CANCER
     Dosage: DOSAGE IS UNCERTAIN.
     Route: 041
     Dates: start: 201512
  5. PERJETA [Suspect]
     Active Substance: PERTUZUMAB
     Indication: BREAST CANCER
     Dosage: DOSAGE IS UNCERTAIN.?STRENGTH: 420MG/14ML.
     Route: 041
     Dates: start: 201512
  6. PERJETA [Suspect]
     Active Substance: PERTUZUMAB
     Dosage: DOSAGE IS UNCERTAIN.?STRENGTH: 420MG/14ML.
     Route: 041
     Dates: start: 201603, end: 201605

REACTIONS (3)
  - Oedema [Recovering/Resolving]
  - Tricuspid valve incompetence [Recovering/Resolving]
  - Mitral valve incompetence [Recovering/Resolving]
